FAERS Safety Report 18923723 (Version 1)
Quarter: 2021Q1

REPORT INFORMATION
  Report Type: Spontaneous
  Country: US (occurrence: US)
  Receive Date: 20210222
  Receipt Date: 20210222
  Transmission Date: 20210420
  Serious: Yes (Other)
  Sender: FDA-Public Use
  Company Number: US-TAKEDA-2021TUS010045

PATIENT
  Sex: Male
  Weight: 80.73 kg

DRUGS (13)
  1. NALTREXONE [Concomitant]
     Active Substance: NALTREXONE
  2. ATOVAQUONE. [Concomitant]
     Active Substance: ATOVAQUONE
  3. CANNABIDIOL [Concomitant]
     Active Substance: CANNABIDIOL
  4. CURCUMIN [Concomitant]
     Active Substance: CURCUMIN
  5. VITAMIN D3 [Concomitant]
     Active Substance: CHOLECALCIFEROL
  6. AZITHROMYCIN ANHYDROUS. [Concomitant]
     Active Substance: AZITHROMYCIN ANHYDROUS
  7. HYDROCORTISONE. [Concomitant]
     Active Substance: HYDROCORTISONE
  8. ARTEMISIA ARGYI [Concomitant]
  9. GAMMAGARD LIQUID [Suspect]
     Active Substance: HUMAN IMMUNOGLOBULIN G
     Indication: ENCEPHALOPATHY
     Dosage: 20 GRAM, Q2WEEKS
     Route: 042
     Dates: start: 20190812
  10. RIFAMPIN. [Concomitant]
     Active Substance: RIFAMPIN
  11. LIOTHYRONINE [Concomitant]
     Active Substance: LIOTHYRONINE
  12. CULTURELLE [Concomitant]
     Active Substance: LACTOBACILLUS RHAMNOSUS
  13. METHYLCOBALAMIN. [Concomitant]
     Active Substance: METHYLCOBALAMIN

REACTIONS (1)
  - Lyme disease [Unknown]
